FAERS Safety Report 8607040-7 (Version None)
Quarter: 2012Q3

REPORT INFORMATION
  Report Type: 
  Country: None (occurrence: None)
  Receive Date: 20120821
  Receipt Date: 20120816
  Transmission Date: 20120928
  Serious: Yes (Hospitalization, Other)
  Sender: FDA-Public Use
  Company Number: US-AMGEN-USASP2012052040

PATIENT
  Age: 53 Year
  Sex: Female

DRUGS (1)
  1. ENBREL [Suspect]
     Indication: RHEUMATOID ARTHRITIS
     Dosage: 50 MG, QWK
     Dates: start: 20110822

REACTIONS (11)
  - SYNCOPE [None]
  - ASTHMA [None]
  - DEPRESSION [None]
  - BRONCHITIS [None]
  - THERAPEUTIC RESPONSE DECREASED [None]
  - NODULE [None]
  - ANXIETY [None]
  - JOINT INJURY [None]
  - PNEUMONIA [None]
  - WALKING AID USER [None]
  - HYPERTENSION [None]
